FAERS Safety Report 5109898-5 (Version None)
Quarter: 2006Q3

REPORT INFORMATION
  Report Type: 
  Country: None (occurrence: None)
  Receive Date: 20060921
  Receipt Date: 20060912
  Transmission Date: 20061208
  Serious: Yes (Other)
  Sender: FDA-Public Use
  Company Number: FR-JNJFOC-20060902809

PATIENT
  Age: 77 Year
  Sex: Female

DRUGS (2)
  1. REMICADE [Suspect]
     Dosage: 4TH INFUSION
     Route: 042
  2. REMICADE [Suspect]
     Indication: RHEUMATOID ARTHRITIS
     Dosage: 3 INFUSIONS
     Route: 042

REACTIONS (8)
  - CATARACT [None]
  - DEPRESSION [None]
  - FATIGUE [None]
  - GLAUCOMA [None]
  - PHARYNGOLARYNGEAL PAIN [None]
  - TOOTH DISORDER [None]
  - VISUAL ACUITY REDUCED [None]
  - VISUAL DISTURBANCE [None]
